FAERS Safety Report 7127978-X (Version None)
Quarter: 2010Q4

REPORT INFORMATION
  Report Type: 
  Country: None (occurrence: None)
  Receive Date: 20101130
  Receipt Date: 20101118
  Transmission Date: 20110411
  Serious: Yes (Hospitalization, Other)
  Sender: FDA-Public Use
  Company Number: CO-JNJFOC-20100806787

PATIENT
  Age: 54 Year
  Sex: Male

DRUGS (8)
  1. REMICADE [Suspect]
     Indication: PSORIATIC ARTHROPATHY
     Route: 042
  2. REMICADE [Suspect]
     Dosage: 2ND DOSE WAS THEN SCHEDULED FOR THSI DATE, IT WAS STARTED THEN STOPPED THEN RESTARTED
     Route: 042
  3. REMICADE [Suspect]
     Indication: PSORIASIS
     Dosage: 2ND DOSE WAS THEN SCHEDULED FOR THSI DATE, IT WAS STARTED THEN STOPPED THEN RESTARTED
     Route: 042
  4. REMICADE [Suspect]
     Route: 042
  5. ENALAPRIL MALEATE [Concomitant]
     Indication: HYPERTENSION
  6. VERAPAMIL [Concomitant]
     Indication: HYPERTENSION
  7. ISONIAZID [Concomitant]
  8. HYDROCHLOROTHIAZIDE [Concomitant]
     Indication: HYPERTENSION

REACTIONS (10)
  - ANAPHYLACTIC REACTION [None]
  - CHEST PAIN [None]
  - DENGUE FEVER [None]
  - DERMATITIS EXFOLIATIVE [None]
  - ERYTHEMA [None]
  - GRAND MAL CONVULSION [None]
  - INFUSION RELATED REACTION [None]
  - MALAISE [None]
  - TUBERCULOSIS OF CENTRAL NERVOUS SYSTEM [None]
  - VOMITING [None]
